FAERS Safety Report 5825230-3 (Version None)
Quarter: 2008Q3

REPORT INFORMATION
  Report Type: 
  Country: None (occurrence: None)
  Receive Date: 20080722
  Receipt Date: 20080711
  Transmission Date: 20090109
  Serious: Yes (Hospitalization)
  Sender: FDA-Public Use
  Company Number: 2008BI017704

PATIENT
  Age: 47 Year
  Sex: Female
  Weight: 63.05 kg

DRUGS (1)
  1. TYSABRI [Suspect]
     Indication: MULTIPLE SCLEROSIS
     Dosage: 300 MG;QM;IV
     Route: 042
     Dates: start: 20070101

REACTIONS (5)
  - NERVE COMPRESSION [None]
  - PNEUMONIA [None]
  - PYREXIA [None]
  - SEPSIS [None]
  - SPINAL COLUMN STENOSIS [None]
